FAERS Safety Report 8875750 (Version 1)
Quarter: 2012Q4

REPORT INFORMATION
  Report Type: 
  Country: EC (occurrence: EC)
  Receive Date: 20121030
  Receipt Date: 20121030
  Transmission Date: 20130627
  Serious: Yes (Disabling)
  Sender: FDA-Public Use
  Company Number: PHHY2012EC098001

PATIENT
  Sex: Female

DRUGS (2)
  1. EXFORGE [Suspect]
     Indication: HYPERTENSION
     Dosage: 1 tablet daily
     Route: 048
     Dates: start: 20100303
  2. VITALUX PLUS [Concomitant]
     Dosage: UNK

REACTIONS (1)
  - Fall [Not Recovered/Not Resolved]
